FAERS Safety Report 7714435-2 (Version None)
Quarter: 2011Q3

REPORT INFORMATION
  Report Type: 
  Country: None (occurrence: None)
  Receive Date: 20110829
  Receipt Date: 20110202
  Transmission Date: 20111222
  Serious: No
  Sender: FDA-Public Use
  Company Number: US-BAYER-2011-012361

PATIENT
  Age: 18 Year
  Sex: Female

DRUGS (1)
  1. MIRENA [Suspect]
     Indication: CONTRACEPTION
     Dosage: 20 ?G/D, UNK
     Dates: start: 20100701

REACTIONS (4)
  - AMENORRHOEA [None]
  - OVARIAN CYST [None]
  - ABDOMINAL PAIN LOWER [None]
  - ABDOMINAL DISCOMFORT [None]
